FAERS Safety Report 5064962-4 (Version None)
Quarter: 2006Q3

REPORT INFORMATION
  Report Type: 
  Country: None (occurrence: None)
  Receive Date: 20060726
  Receipt Date: 20060707
  Transmission Date: 20061208
  Serious: Yes (Other)
  Sender: FDA-Public Use
  Company Number: US200606001653

PATIENT
  Age: 82 Year
  Sex: Female

DRUGS (8)
  1. FORTEO [Suspect]
     Dates: start: 20041001
  2. FORTEO [Concomitant]
  3. PRILOSEC [Concomitant]
  4. ALPRAZOLAM [Concomitant]
  5. TOPROL-XL [Concomitant]
  6. HYDROCHLOROTHIAZIDE [Concomitant]
  7. TEMAZEPAM [Concomitant]
  8. ESTRACE [Concomitant]

REACTIONS (5)
  - ASCITES [None]
  - PLEURAL EFFUSION [None]
  - SEROSITIS [None]
  - SYSTEMIC LUPUS ERYTHEMATOSUS [None]
  - THROMBOCYTOPENIA [None]
